FAERS Safety Report 9665286 (Version 1)
Quarter: 2013Q4

REPORT INFORMATION
  Report Type: Spontaneous
  Country: US (occurrence: US)
  Receive Date: 20131101
  Receipt Date: 20131101
  Transmission Date: 20140711
  Serious: No
  Sender: FDA-Public Use
  Company Number: US-TEVA-441693USA

PATIENT
  Sex: Female

DRUGS (1)
  1. QVAR [Suspect]
     Indication: ASTHMA

REACTIONS (3)
  - Asthma [Not Recovered/Not Resolved]
  - Premature baby [Unknown]
  - Live birth [Unknown]
